FAERS Safety Report 8430168-1 (Version None)
Quarter: 2012Q2

REPORT INFORMATION
  Report Type: 
  Country: None (occurrence: None)
  Receive Date: 20120612
  Receipt Date: 20120604
  Transmission Date: 20120825
  Serious: Yes (Other)
  Sender: FDA-Public Use
  Company Number: BR-ROCHE-740116

PATIENT
  Sex: Female
  Weight: 74 kg

DRUGS (13)
  1. TANDRILAX [Concomitant]
  2. ACTEMRA [Suspect]
  3. ACTEMRA [Suspect]
  4. ATENOLOL [Concomitant]
     Indication: HYPERTENSION
     Dosage: STARTED BEFORE 2005
     Route: 048
  5. AMLODIPINE [Concomitant]
  6. METHOTREXATE [Concomitant]
     Indication: RHEUMATOID ARTHRITIS
     Dosage: STARTED BEFORE 2005
     Route: 048
  7. ENALAPRIL MALEATE [Concomitant]
  8. ACTEMRA [Suspect]
     Route: 042
  9. OMEPRAZOLE [Concomitant]
     Indication: GASTRITIS
     Dosage: STARTED BEFORE 2005
     Route: 048
  10. PREDNISONE [Concomitant]
  11. ACTEMRA [Suspect]
     Indication: RHEUMATOID ARTHRITIS
     Dosage: LAST INFUSION DATE: /MAY/2012
     Route: 042
  12. ACTEMRA [Suspect]
  13. ACTEMRA [Suspect]

REACTIONS (4)
  - EYE IRRITATION [None]
  - BLOOD PRESSURE DECREASED [None]
  - BLOOD PRESSURE FLUCTUATION [None]
  - ASTHENIA [None]
